FAERS Safety Report 15968004 (Version 1)
Quarter: 2019Q1

REPORT INFORMATION
  Report Type: Report from Study
  Country: CO (occurrence: CO)
  Receive Date: 20190215
  Receipt Date: 20190215
  Transmission Date: 20190418
  Serious: Yes (Hospitalization, Other)
  Sender: FDA-Public Use
  Company Number: PHHY2018CO166962

PATIENT
  Sex: Male
  Weight: 65 kg

DRUGS (3)
  1. VOTRIENT [Suspect]
     Active Substance: PAZOPANIB HYDROCHLORIDE
     Indication: METASTATIC RENAL CELL CARCINOMA
     Dosage: 800 MG, QD (2 TABLET)
     Route: 048
     Dates: start: 20180905
  2. LOSARTAN. [Suspect]
     Active Substance: LOSARTAN
     Indication: HYPERTENSION
     Dosage: 3 OF 50 MG, QD
     Route: 048
  3. LEVOTHYROXINE. [Concomitant]
     Active Substance: LEVOTHYROXINE
     Indication: HYPOTHYROIDISM
     Dosage: 1 OF 112 MG, QD
     Route: 048

REACTIONS (6)
  - Pyrexia [Recovering/Resolving]
  - Prostate cancer [Unknown]
  - Decreased appetite [Unknown]
  - Second primary malignancy [Unknown]
  - Weight decreased [Unknown]
  - Infection [Recovering/Resolving]
